FAERS Safety Report 10335916 (Version 1)
Quarter: 2014Q3

REPORT INFORMATION
  Report Type: Spontaneous
  Country: US (occurrence: US)
  Receive Date: 20140723
  Receipt Date: 20140723
  Transmission Date: 20150326
  Serious: No
  Sender: FDA-Public Use
  Company Number: US-009507513-1407USA010063

PATIENT
  Sex: Male

DRUGS (1)
  1. DR. SCHOLL^S CLEAR AWAY PLANTAR PATCH [Suspect]
     Active Substance: SALICYLIC ACID
     Indication: SKIN PAPILLOMA
     Dosage: UNK, UNKNOWN
     Route: 061

REACTIONS (2)
  - Product adhesion issue [Unknown]
  - Drug ineffective [Unknown]
